FAERS Safety Report 24266936 (Version 1)
Quarter: 2024Q3

REPORT INFORMATION
  Report Type: Report from Study
  Country: IQ (occurrence: IQ)
  Receive Date: 20240830
  Receipt Date: 20240830
  Transmission Date: 20241017
  Serious: Yes (Other)
  Sender: REGENERON
  Company Number: IQ-BAYER-2024A123466

PATIENT
  Age: 66 Year
  Sex: Male

DRUGS (1)
  1. EYLEA [Suspect]
     Active Substance: AFLIBERCEPT
     Indication: Diabetic retinal oedema
     Dosage: 9 DOSE, INJECTION, MONTHY WITH REST BETWEN COURSES , SOL FOR INJ, 40 MG/ML
     Dates: start: 202309

REACTIONS (1)
  - Vitreous haemorrhage [Not Recovered/Not Resolved]
